FAERS Safety Report 24161206 (Version 1)
Quarter: 2024Q3

REPORT INFORMATION
  Report Type: Spontaneous
  Country: IT (occurrence: IT)
  Receive Date: 20240801
  Receipt Date: 20240801
  Transmission Date: 20241017
  Serious: Yes (Other)
  Sender: TEVA
  Company Number: None

PATIENT
  Age: 63 Year
  Sex: Male

DRUGS (2)
  1. CAPECITABINE [Suspect]
     Active Substance: CAPECITABINE
     Indication: Colon cancer
     Dosage: THERAPY START 09/26/2023 - 2ND CYCLE START 10/18/2023 FOR 14 DAYS, EVERY 21 DAYS - 3 X 500 MG X2/DAY
     Route: 048
     Dates: start: 20231018, end: 20231101
  2. ELOXATIN [Suspect]
     Active Substance: OXALIPLATIN
     Indication: Colon cancer
     Dosage: THERAPY START 09/26/2023 - THERAPY EVERY 21 DAYS - II CYCLE
     Route: 042
     Dates: start: 20231017, end: 20231017

REACTIONS (3)
  - Neutropenia [Recovering/Resolving]
  - Leukopenia [Recovering/Resolving]
  - Thrombocytopenia [Recovering/Resolving]

NARRATIVE: CASE EVENT DATE: 20231102
